FAERS Safety Report 6643597-3 (Version None)
Quarter: 2010Q1

REPORT INFORMATION
  Report Type: 
  Country: None (occurrence: None)
  Receive Date: 20100320
  Receipt Date: 20100310
  Transmission Date: 20100710
  Serious: Yes (Hospitalization, Other)
  Sender: FDA-Public Use
  Company Number: FR-JNJFOC-20100304019

PATIENT
  Age: 42 Year
  Sex: Female

DRUGS (2)
  1. RISPERDAL [Suspect]
     Indication: SCHIZOPHRENIA
     Route: 065
  2. ANTIPSYCHOTIC [Concomitant]
     Indication: SCHIZOPHRENIA
     Route: 065

REACTIONS (2)
  - NORMOCHROMIC NORMOCYTIC ANAEMIA [None]
  - SEPSIS [None]
